FAERS Safety Report 4656470-7 (Version None)
Quarter: 2005Q2

REPORT INFORMATION
  Report Type: 
  Country: None (occurrence: None)
  Receive Date: 20050505
  Receipt Date: 20050420
  Transmission Date: 20051028
  Serious: Yes (Other)
  Sender: FDA-Public Use
  Company Number: FR-2005-005987

PATIENT
  Age: 37 Year
  Sex: Female

DRUGS (2)
  1. MIRENA [Suspect]
     Indication: CONTRACEPTION
     Dosage: 20 ?G/DAY, CONT, INTRA-UTERINE
     Route: 015
     Dates: start: 20000520
  2. KARDEGIC   /FRA/(ACETYLSALICYLATE LYSINE) [Concomitant]

REACTIONS (3)
  - HEPATIC ARTERY ANEURYSM [None]
  - HEREDITARY HAEMORRHAGIC TELANGIECTASIA [None]
  - PULMONARY ARTERIOVENOUS FISTULA [None]
